FAERS Safety Report 7954570-7 (Version None)
Quarter: 2011Q4

REPORT INFORMATION
  Report Type: 
  Country: None (occurrence: None)
  Receive Date: 20111202
  Receipt Date: 20111123
  Transmission Date: 20120403
  Serious: Yes (Hospitalization)
  Sender: FDA-Public Use
  Company Number: PHHY2011CA104133

PATIENT
  Sex: Male

DRUGS (1)
  1. SANDOSTATIN LAR [Suspect]
     Indication: RADIATION OESOPHAGITIS
     Dosage: 10 MG, EVERY 4 WEEKS
     Route: 030
     Dates: start: 20111117

REACTIONS (2)
  - DECREASED APPETITE [None]
  - MUSCULAR WEAKNESS [None]
